FAERS Safety Report 13694989 (Version 1)
Quarter: 2017Q2

REPORT INFORMATION
  Report Type: Spontaneous
  Country: US (occurrence: US)
  Receive Date: 20170627
  Receipt Date: 20170627
  Transmission Date: 20170830
  Serious: Yes (Other)
  Sender: FDA-Public Use
  Company Number: PHHY2017US089807

PATIENT
  Age: 6 Year
  Sex: Female

DRUGS (2)
  1. THIOTEPA. [Suspect]
     Active Substance: THIOTEPA
     Indication: NONGERMINOMATOUS GERM CELL TUMOUR OF THE CNS
     Route: 065
  2. CARBOPLATIN. [Suspect]
     Active Substance: CARBOPLATIN
     Indication: NONGERMINOMATOUS GERM CELL TUMOUR OF THE CNS
     Route: 065

REACTIONS (3)
  - Paraplegia [Not Recovered/Not Resolved]
  - Malignant neoplasm progression [Recovering/Resolving]
  - Nongerminomatous germ cell tumour of the CNS [Recovering/Resolving]
